FAERS Safety Report 17576910 (Version 1)
Quarter: 2020Q1

REPORT INFORMATION
  Report Type: Spontaneous
  Country: JP (occurrence: JP)
  Receive Date: 20200324
  Receipt Date: 20200324
  Transmission Date: 20200409
  Serious: Yes (Other)
  Sender: FDA-Public Use
  Company Number: JP-009507513-2003JPN002098J

PATIENT
  Age: 83 Year
  Sex: Female

DRUGS (1)
  1. ZERBAXA [Suspect]
     Active Substance: CEFTOLOZANE SULFATE\TAZOBACTAM SODIUM
     Indication: ABDOMINAL ABSCESS
     Dosage: 1500 MG, TID
     Route: 041
     Dates: start: 20200214, end: 20200221

REACTIONS (1)
  - Uterine abscess [Unknown]

NARRATIVE: CASE EVENT DATE: 20200221
